FAERS Safety Report 24073292 (Version 1)
Quarter: 2024Q3

REPORT INFORMATION
  Report Type: Spontaneous
  Country: BE (occurrence: BE)
  Receive Date: 20240710
  Receipt Date: 20240710
  Transmission Date: 20241016
  Serious: Yes (Other)
  Sender: PFIZER
  Company Number: BE-TAKEDA-2023TUS006099

PATIENT
  Sex: Male
  Weight: 65 kg

DRUGS (4)
  1. ADCETRIS [Suspect]
     Active Substance: BRENTUXIMAB VEDOTIN
     Indication: Grey zone lymphoma
     Dosage: UNK
     Route: 065
     Dates: start: 20230124
  2. CYTARABINE [Suspect]
     Active Substance: CYTARABINE
     Indication: Grey zone lymphoma
     Dosage: 2000 MG/M2
     Route: 065
     Dates: start: 20230124
  3. CISPLATIN [Suspect]
     Active Substance: CISPLATIN
     Dosage: 100 MG/M2
     Route: 065
     Dates: start: 20230124
  4. DEXAMETHASONE [Suspect]
     Active Substance: DEXAMETHASONE
     Indication: Grey zone lymphoma
     Dosage: 40 MG
     Route: 065
     Dates: start: 20230124

REACTIONS (4)
  - Respiratory syncytial virus infection [Recovered/Resolved]
  - Febrile neutropenia [Recovered/Resolved]
  - Stomatitis [Recovered/Resolved]
  - Off label use [Unknown]

NARRATIVE: CASE EVENT DATE: 20230202
